FAERS Safety Report 8740354 (Version 2)
Quarter: 2012Q4

REPORT INFORMATION
  Report Type: 
  Country: US (occurrence: US)
  Receive Date: 20120823
  Receipt Date: 20120829
  Transmission Date: 20130627
  Serious: No
  Sender: FDA-Public Use
  Company Number: US-009507513-2012SP032085

PATIENT

DRUGS (1)
  1. NUVARING [Suspect]
     Dosage: 0.015/0.12 mg
     Route: 067

REACTIONS (1)
  - Unintended pregnancy [Not Recovered/Not Resolved]
